FAERS Safety Report 5529148-5 (Version None)
Quarter: 2007Q4

REPORT INFORMATION
  Report Type: 
  Country: None (occurrence: None)
  Receive Date: 20071129
  Receipt Date: 20070209
  Transmission Date: 20080405
  Serious: Yes (Other)
  Sender: FDA-Public Use
  Company Number: A0639042A

PATIENT
  Age: 45 Year
  Sex: Male

DRUGS (3)
  1. WELLBUTRIN SR [Suspect]
     Dosage: 150MG TWICE PER DAY
     Route: 048
     Dates: start: 20070208
  2. LEXAPRO [Suspect]
     Indication: DRUG USE FOR UNKNOWN INDICATION
     Dates: end: 20070206
  3. ALCOHOL [Concomitant]

REACTIONS (3)
  - DISORIENTATION [None]
  - PANIC ATTACK [None]
  - SUICIDAL IDEATION [None]
